FAERS Safety Report 7462756-3 (Version None)
Quarter: 2011Q2

REPORT INFORMATION
  Report Type: 
  Country: None (occurrence: None)
  Receive Date: 20110506
  Receipt Date: 20110421
  Transmission Date: 20111010
  Serious: Yes (Other)
  Sender: FDA-Public Use
  Company Number: US-BAYER-200938686NA

PATIENT
  Age: 72 Year
  Sex: Male

DRUGS (9)
  1. ANTIHYPERTENSIVES [Concomitant]
  2. PROZAC [Concomitant]
     Dosage: 10 MG, UNK
     Route: 048
  3. NEXAVAR [Suspect]
     Dosage: AS USED DOSE: 200-400 MG
     Route: 048
     Dates: start: 20091103, end: 20091101
  4. NEXAVAR [Suspect]
     Route: 048
     Dates: start: 20091101
  5. ASPIRIN [Concomitant]
     Dosage: 81 MG, UNK
     Route: 048
  6. NEXAVAR [Suspect]
     Indication: HEPATIC NEOPLASM MALIGNANT
     Dosage: X 5 DAYS - AS USED DOSE: `200 MG
     Route: 048
     Dates: start: 20091024, end: 20091028
  7. NEXAVAR [Suspect]
     Dosage: X 5 DAYS
     Route: 048
     Dates: start: 20091029, end: 20091102
  8. LISINOPRIL [Concomitant]
     Dosage: 2.5 MG, UNK
     Route: 048
  9. PLAVIX [Concomitant]
     Dosage: 75 MG, UNK
     Route: 048

REACTIONS (11)
  - RASH [None]
  - ALOPECIA [None]
  - HOT FLUSH [None]
  - DECREASED APPETITE [None]
  - SYSTEMIC LUPUS ERYTHEMATOSUS RASH [None]
  - DIARRHOEA [None]
  - ABDOMINAL PAIN [None]
  - WEIGHT DECREASED [None]
  - NAUSEA [None]
  - ERYTHEMA [None]
  - DRY SKIN [None]
